FAERS Safety Report 9325891 (Version 1)
Quarter: 2013Q2

REPORT INFORMATION
  Report Type: Spontaneous
  Country: SE (occurrence: SE)
  Receive Date: 20130604
  Receipt Date: 20130604
  Transmission Date: 20140414
  Serious: Yes (Hospitalization)
  Sender: FDA-Public Use
  Company Number: SE-JNJFOC-20130516178

PATIENT
  Age: 30 Year
  Sex: Female

DRUGS (2)
  1. XEPLION [Suspect]
     Indication: SCHIZOAFFECTIVE DISORDER
     Route: 030
  2. UNKNOWN MEDICATION [Interacting]
     Indication: PRODUCT USED FOR UNKNOWN INDICATION
     Route: 065

REACTIONS (3)
  - Psychotic disorder [Unknown]
  - General physical health deterioration [Unknown]
  - Drug interaction [Unknown]
